FAERS Safety Report 17361660 (Version 3)
Quarter: 2020Q3

REPORT INFORMATION
  Report Type: Spontaneous
  Country: US (occurrence: US)
  Receive Date: 20200203
  Receipt Date: 20200901
  Transmission Date: 20201102
  Serious: Yes (Other)
  Sender: FDA-Public Use
  Company Number: US-GILEAD-2020-0448789

PATIENT
  Age: 56 Year
  Sex: Male
  Weight: 108 kg

DRUGS (29)
  1. TRUVADA [Suspect]
     Active Substance: EMTRICITABINE\TENOFOVIR DISOPROXIL FUMARATE
     Dosage: UNK
     Route: 048
     Dates: start: 20120320, end: 2019
  2. TYLENOL [Concomitant]
     Active Substance: ACETAMINOPHEN
  3. TRIUMEQ [Concomitant]
     Active Substance: ABACAVIR SULFATE\DOLUTEGRAVIR SODIUM\LAMIVUDINE
  4. DIPHENHYDRAMINE. [Concomitant]
     Active Substance: DIPHENHYDRAMINE
  5. DULOXETINE. [Concomitant]
     Active Substance: DULOXETINE
  6. NAPROXEN. [Concomitant]
     Active Substance: NAPROXEN
  7. GENVOYA [Concomitant]
     Active Substance: COBICISTAT\ELVITEGRAVIR\EMTRICITABINE\TENOFOVIR ALAFENAMIDE FUMARATE
  8. METFORMIN [Concomitant]
     Active Substance: METFORMIN HYDROCHLORIDE
  9. NORVIR [Concomitant]
     Active Substance: RITONAVIR
  10. CIALIS [Concomitant]
     Active Substance: TADALAFIL
  11. LISINOPRIL. [Concomitant]
     Active Substance: LISINOPRIL
  12. FERROUS SULFATE. [Concomitant]
     Active Substance: FERROUS SULFATE
  13. PIOGLITAZONE. [Concomitant]
     Active Substance: PIOGLITAZONE
  14. TRAMADOL. [Concomitant]
     Active Substance: TRAMADOL
  15. GABAPENTIN. [Concomitant]
     Active Substance: GABAPENTIN
  16. AMOXICILLIN. [Concomitant]
     Active Substance: AMOXICILLIN
  17. ETODOLAC. [Concomitant]
     Active Substance: ETODOLAC
  18. FEXOFENADINE [Concomitant]
     Active Substance: FEXOFENADINE HYDROCHLORIDE
  19. LORATADINE. [Concomitant]
     Active Substance: LORATADINE
  20. REYATAZ [Concomitant]
     Active Substance: ATAZANAVIR SULFATE
  21. BENZOATE D^ESTRADIOL [Concomitant]
  22. CHANTIX [Concomitant]
     Active Substance: VARENICLINE TARTRATE
  23. CYCLOBENZAPRINE. [Concomitant]
     Active Substance: CYCLOBENZAPRINE
  24. TRUVADA [Suspect]
     Active Substance: EMTRICITABINE\TENOFOVIR DISOPROXIL FUMARATE
     Indication: HIV INFECTION
     Dosage: UNK
     Route: 048
     Dates: start: 20081226, end: 20110926
  25. TAMSULOSIN [Concomitant]
     Active Substance: TAMSULOSIN
  26. GEMFIBROZIL. [Concomitant]
     Active Substance: GEMFIBROZIL
  27. ASPIRIN (E.C.) [Concomitant]
     Active Substance: ASPIRIN
  28. BUSPIRONE [Concomitant]
     Active Substance: BUSPIRONE HYDROCHLORIDE
  29. FLUTICASONE. [Concomitant]
     Active Substance: FLUTICASONE

REACTIONS (7)
  - Anxiety [Not Recovered/Not Resolved]
  - Pain [Not Recovered/Not Resolved]
  - Chronic kidney disease [Not Recovered/Not Resolved]
  - Emotional distress [Not Recovered/Not Resolved]
  - Anhedonia [Not Recovered/Not Resolved]
  - Economic problem [Not Recovered/Not Resolved]
  - Depression [Not Recovered/Not Resolved]

NARRATIVE: CASE EVENT DATE: 201206
